FAERS Safety Report 25039794 (Version 1)
Quarter: 2025Q1

REPORT INFORMATION
  Report Type: Spontaneous
  Country: CN (occurrence: CN)
  Receive Date: 20250305
  Receipt Date: 20250305
  Transmission Date: 20250409
  Serious: Yes (Other)
  Sender: ALKEM
  Company Number: None

PATIENT
  Age: 68 Year
  Sex: Male

DRUGS (22)
  1. VANCOMYCIN [Suspect]
     Active Substance: VANCOMYCIN
     Indication: Clostridium difficile infection
     Dosage: 125 MILLIGRAM, QID
     Route: 048
  2. IBUPROFEN [Suspect]
     Active Substance: IBUPROFEN
     Indication: Pyrexia
     Route: 048
  3. IBUPROFEN [Suspect]
     Active Substance: IBUPROFEN
     Route: 048
  4. BORTEZOMIB [Suspect]
     Active Substance: BORTEZOMIB
     Indication: Plasma cell myeloma
     Route: 065
  5. DEXAMETHASONE [Suspect]
     Active Substance: DEXAMETHASONE
     Indication: Plasma cell myeloma
     Route: 065
  6. AMLODIPINE [Concomitant]
     Active Substance: AMLODIPINE BESYLATE
     Indication: Hypertension
     Dosage: 5 MILLIGRAM, QD
     Route: 065
  7. BUDESONIDE [Concomitant]
     Active Substance: BUDESONIDE
     Indication: Chronic obstructive pulmonary disease
     Route: 065
  8. Cefoperazone-sulbactam sodium [Concomitant]
     Indication: Respiratory tract infection
     Dosage: 3 GRAM, TID
     Route: 042
  9. Cefoperazone-sulbactam sodium [Concomitant]
     Indication: Evidence based treatment
  10. Cefoperazone-sulbactam sodium [Concomitant]
     Indication: Pneumonia
  11. FORMOTEROL FUMARATE [Concomitant]
     Active Substance: FORMOTEROL FUMARATE
     Indication: Chronic obstructive pulmonary disease
     Dosage: UNK, BID ( AEROSOL 2  PUFFS )
  12. GLYCOPYRROLATE [Concomitant]
     Active Substance: GLYCOPYRROLATE
     Indication: Chronic obstructive pulmonary disease
     Route: 065
  13. ISATUXIMAB [Concomitant]
     Active Substance: ISATUXIMAB
     Indication: Plasma cell myeloma
     Route: 065
  14. IXAZOMIB [Concomitant]
     Active Substance: IXAZOMIB
     Indication: Plasma cell myeloma
     Dosage: 4 MILLIGRAM, ONCE WEEKLY
     Route: 048
  15. METHYLCOBALAMIN [Concomitant]
     Active Substance: METHYLCOBALAMIN
     Indication: Symptomatic treatment
     Route: 065
  16. MEROPENEM [Concomitant]
     Active Substance: MEROPENEM
     Indication: Respiratory tract infection
     Dosage: 1 GRAM, TID
     Route: 042
  17. MEROPENEM [Concomitant]
     Active Substance: MEROPENEM
     Indication: Pneumonia
  18. OXYGEN [Concomitant]
     Active Substance: OXYGEN
     Indication: Chronic obstructive pulmonary disease
     Route: 065
  19. ROSUVASTATIN [Concomitant]
     Active Substance: ROSUVASTATIN
     Indication: Cerebral infarction
     Dosage: 10 MILLIGRAM, QD
     Route: 065
  20. TEICOPLANIN [Concomitant]
     Active Substance: TEICOPLANIN
     Indication: Respiratory tract infection
     Dosage: 400 MILLIGRAM, QD
     Route: 042
  21. TEICOPLANIN [Concomitant]
     Active Substance: TEICOPLANIN
     Indication: Clostridium difficile infection
     Dosage: 200 MILLIGRAM, BID
     Route: 048
  22. VITAMIN B1 [Concomitant]
     Active Substance: THIAMINE HYDROCHLORIDE
     Indication: Symptomatic treatment
     Route: 065

REACTIONS (4)
  - Vancomycin infusion reaction [Recovering/Resolving]
  - Pneumonia [Recovered/Resolved]
  - Dermatitis allergic [Unknown]
  - Respiratory tract infection [Recovering/Resolving]

NARRATIVE: CASE EVENT DATE: 20230101
